FAERS Safety Report 21647176 (Version 1)
Quarter: 2022Q4

REPORT INFORMATION
  Report Type: Report from Study
  Country: US (occurrence: US)
  Receive Date: 20221127
  Receipt Date: 20221127
  Transmission Date: 20230112
  Serious: No
  Sender: FDA-Public Use
  Company Number: US-ABBVIE-4180866

PATIENT
  Sex: Female

DRUGS (1)
  1. RINVOQ [Suspect]
     Active Substance: UPADACITINIB
     Indication: Rheumatoid arthritis
     Dosage: THE EVENT ONSET DATE FOR THE EVENT OF LIGHTHEADEDNESS, HEART RACING  AND HEARTBURN WERE IN 2022.
     Route: 048
     Dates: start: 20221012

REACTIONS (3)
  - Palpitations [Unknown]
  - Dizziness [Unknown]
  - Dyspepsia [Unknown]
